FAERS Safety Report 15245977 (Version 3)
Quarter: 2018Q3

REPORT INFORMATION
  Report Type: Spontaneous
  Country: DE (occurrence: DE)
  Receive Date: 20180806
  Receipt Date: 20180920
  Transmission Date: 20181010
  Serious: Yes (Death, Life-Threatening)
  Sender: FDA-Public Use
  Company Number: DE-PFIZER INC-2018312064

PATIENT
  Age: 29 Year
  Sex: Female

DRUGS (11)
  1. ERGENYL [Concomitant]
     Active Substance: VALPROIC ACID
     Dosage: 1000 MG, 1X/DAY
     Route: 048
     Dates: end: 20171219
  2. ERGENYL [Concomitant]
     Active Substance: VALPROIC ACID
     Dosage: 1300 MG, 1X/DAY
     Route: 048
     Dates: start: 20171220, end: 20171230
  3. ERGENYL [Concomitant]
     Active Substance: VALPROIC ACID
     Dosage: 1600 MG, 1X/DAY
     Route: 048
     Dates: start: 20171231, end: 20180207
  4. L?THYROXIN [Concomitant]
     Active Substance: LEVOTHYROXINE SODIUM
     Indication: HYPOTHYROIDISM
     Dosage: 50 UG, 1X/DAY
     Route: 048
     Dates: end: 20180207
  5. MAGNESIUM [Concomitant]
     Active Substance: MAGNESIUM
     Dosage: 40 MG, 1X/DAY
     Route: 048
     Dates: start: 20170108, end: 20180207
  6. PIPAMPERONE [Suspect]
     Active Substance: PIPAMPERONE
     Dosage: 120 TO 160 MG
     Route: 048
     Dates: start: 20180105, end: 20180207
  7. DEPO?CLINOVIR [Suspect]
     Active Substance: MEDROXYPROGESTERONE ACETATE
     Dosage: UNK, SINCE 3 MONTHS
     Route: 042
     Dates: end: 20180206
  8. DOCITON [Suspect]
     Active Substance: PROPRANOLOL HYDROCHLORIDE
     Dosage: 20 MG, 1X/DAY
     Route: 048
     Dates: end: 20180207
  9. VELMETIA [Concomitant]
     Active Substance: METFORMIN\SITAGLIPTIN
     Indication: TYPE 2 DIABETES MELLITUS
     Dosage: 2 DF, 1X/DAY
     Route: 048
     Dates: end: 20180207
  10. CLOZAPINE. [Suspect]
     Active Substance: CLOZAPINE
     Dosage: 550 TO 1100 MG, PER DAY
     Route: 048
     Dates: start: 2014, end: 20180207
  11. PANTOPRAZOL [Concomitant]
     Active Substance: PANTOPRAZOLE SODIUM
     Dosage: 40 MG, 1X/DAY
     Route: 048
     Dates: end: 20180207

REACTIONS (2)
  - Product use issue [Unknown]
  - Death [Fatal]

NARRATIVE: CASE EVENT DATE: 20180207
